FAERS Safety Report 9318908 (Version 2)
Quarter: 2013Q2

REPORT INFORMATION
  Report Type: Spontaneous
  Country: CA (occurrence: None)
  Receive Date: 20130520
  Receipt Date: 20130606
  Transmission Date: 20140414
  Serious: Yes (Hospitalization, Other)
  Sender: FDA-Public Use
  Company Number: 2013035884

PATIENT
  Age: 39 Year
  Sex: Female

DRUGS (6)
  1. HIZENTRA (IMMUNOGLOBULIN HUMAN NORMAL) [Suspect]
     Indication: PRIMARY IMMUNODEFICIENCY SYNDROME
     Dosage: 5 ML TOTAL
     Dates: start: 20130414
  2. CONTRACEPTIVES NOS (CONTRACEPTIVES NOS) [Concomitant]
  3. ANTIHISTAMINES (ANTIHISTAMINES) [Concomitant]
  4. CELEBREX(CELECOXIB) [Concomitant]
  5. CELEBREX (CELECOXIB) [Concomitant]
     Route: 048
     Dates: start: 201304, end: 20130418
  6. REACTINE/00884301/ (CETIRIZINE) [Concomitant]

REACTIONS (12)
  - Convulsion [None]
  - Tremor [None]
  - Flushing [None]
  - Feeling hot [None]
  - Diarrhoea [None]
  - Dizziness [None]
  - Presyncope [None]
  - Hepatic enzyme increased [None]
  - Pancreatitis [None]
  - Syncope [None]
  - Rash [None]
  - Arthralgia [None]
